FAERS Safety Report 13295672 (Version 1)
Quarter: 2017Q1

REPORT INFORMATION
  Report Type: Spontaneous
  Country: None (occurrence: US)
  Receive Date: 20170303
  Receipt Date: 20170303
  Transmission Date: 20170428
  Serious: No
  Sender: FDA-Public Use
  Company Number: US-ALK-ABELLO A/S-1063818

PATIENT
  Age: 46 Year
  Sex: Male
  Weight: 105.7 kg

DRUGS (1)
  1. GRASTEK [Suspect]
     Active Substance: PHLEUM PRATENSE POLLEN
     Indication: SEASONAL ALLERGY
     Dates: start: 20170220

REACTIONS (4)
  - Oral pruritus [Unknown]
  - Throat irritation [Recovered/Resolved]
  - Ear pruritus [Unknown]
  - Pruritus generalised [Recovered/Resolved]

NARRATIVE: CASE EVENT DATE: 20170220
